FAERS Safety Report 9696224 (Version 3)
Quarter: 2014Q3

REPORT INFORMATION
  Report Type: Report from Study
  Country: BD (occurrence: BD)
  Receive Date: 20131119
  Receipt Date: 20140915
  Transmission Date: 20150326
  Serious: Yes (Death, Other)
  Sender: FDA-Public Use
  Company Number: PHHY2013BD132133

PATIENT
  Age: 74 Year
  Sex: Male

DRUGS (2)
  1. ANTIHYPERTENSIVES [Concomitant]
     Active Substance: UNSPECIFIED INGREDIENT
  2. EXELON PATCH [Suspect]
     Active Substance: RIVASTIGMINE
     Indication: DEMENTIA
     Dosage: 4.6 MG (5 CM), DAILY
     Route: 062
     Dates: start: 20131003

REACTIONS (2)
  - Dementia [Fatal]
  - General physical health deterioration [Unknown]
